FAERS Safety Report 4313182-7 (Version None)
Quarter: 2004Q1

REPORT INFORMATION
  Report Type: 
  Country: None (occurrence: None)
  Receive Date: 20040308
  Receipt Date: 20040302
  Transmission Date: 20041129
  Serious: Yes (Other)
  Sender: FDA-Public Use
  Company Number: 200411620US

PATIENT
  Sex: Male
  Weight: 159 kg

DRUGS (10)
  1. LANTUS [Suspect]
     Indication: DIABETES MELLITUS
     Dosage: DOSE UNIT: UNITS
     Dates: start: 20020101
  2. SERUMLIPIDREDUCING AGENTS [Concomitant]
     Dosage: DOSE: NOT PROVIDED
     Dates: end: 20030801
  3. AVANDIA [Concomitant]
     Dosage: DOSE: NOT PROVIDED
  4. GLUCOPHAGE [Concomitant]
     Dosage: DOSE: NOT PROVIDED
     Dates: end: 20031101
  5. DIOVAN [Concomitant]
     Dosage: DOSE: NOT PROVIDED
  6. VIOXX [Concomitant]
     Dosage: DOSE: NOT PROVIDED
  7. PREVACID [Concomitant]
     Dosage: DOSE: NOT PROVIDED
  8. LASIX [Concomitant]
     Dosage: DOSE: NOT PROVIDED
  9. POTASSIUM [Concomitant]
     Dosage: DOSE: NOT PROVIDED
  10. HUMALOG [Concomitant]
     Dosage: DOSE: NOT PROVIDED

REACTIONS (5)
  - ASTHENIA [None]
  - BLOOD CREATINE PHOSPHOKINASE INCREASED [None]
  - MUSCLE SPASMS [None]
  - MYOGLOBIN URINE PRESENT [None]
  - MYOPATHY [None]
